FAERS Safety Report 9789917 (Version 1)
Quarter: 2013Q4

REPORT INFORMATION
  Report Type: Spontaneous
  Country: US (occurrence: None)
  Receive Date: 20131230
  Receipt Date: 20131230
  Transmission Date: 20140711
  Serious: No
  Sender: FDA-Public Use
  Company Number: None

PATIENT
  Age: 37 Year
  Sex: Male

DRUGS (1)
  1. VILAZODONE [Suspect]
     Indication: DEPRESSION
     Dosage: 1 40MG  PILL ONCE DAILY
     Route: 048
     Dates: start: 20131118, end: 20131216

REACTIONS (4)
  - Drug effect decreased [None]
  - Depression [None]
  - Product quality issue [None]
  - Product substitution issue [None]
